FAERS Safety Report 10024977 (Version 10)
Quarter: 2016Q1

REPORT INFORMATION
  Report Type: Spontaneous
  Country: US (occurrence: US)
  Receive Date: 20140320
  Receipt Date: 20160302
  Transmission Date: 20160525
  Serious: Yes (Hospitalization, Disabling, Other)
  Sender: FDA-Public Use
  Company Number: US-009507513-1403USA007799

PATIENT
  Sex: Female

DRUGS (5)
  1. FOSAMAX [Suspect]
     Active Substance: ALENDRONATE SODIUM
     Indication: OSTEOPOROSIS
     Dosage: 70 MG, QW
     Route: 048
     Dates: start: 200805, end: 20100416
  2. FOSAMAX [Suspect]
     Active Substance: ALENDRONATE SODIUM
     Dosage: 35 MG, QW
     Route: 048
     Dates: start: 20080625
  3. FOSAMAX [Suspect]
     Active Substance: ALENDRONATE SODIUM
     Dosage: UNK
     Route: 065
     Dates: start: 200811
  4. FOSAMAX [Suspect]
     Active Substance: ALENDRONATE SODIUM
     Dosage: UNK
     Route: 048
     Dates: start: 2008, end: 2011
  5. ALENDRONATE SODIUM. [Suspect]
     Active Substance: ALENDRONATE SODIUM
     Indication: OSTEOPOROSIS
     Dosage: 70 MG, QW
     Route: 048
     Dates: start: 20100416, end: 201011

REACTIONS (60)
  - Femur fracture [Unknown]
  - Road traffic accident [Unknown]
  - Sedation [Unknown]
  - Body height decreased [Unknown]
  - Urge incontinence [Unknown]
  - Substance use [Unknown]
  - Temperature intolerance [Unknown]
  - Femur fracture [Unknown]
  - Pain [Unknown]
  - Gait disturbance [Not Recovered/Not Resolved]
  - Osteoarthritis [Unknown]
  - Femur fracture [Unknown]
  - Drug intolerance [Unknown]
  - Fatigue [Unknown]
  - Wheezing [Unknown]
  - Extremity necrosis [Unknown]
  - Fibula fracture [Recovered/Resolved]
  - Depression [Unknown]
  - Femur fracture [Unknown]
  - Hyperhidrosis [Unknown]
  - Spinal operation [Unknown]
  - Spinal compression fracture [Unknown]
  - Femur fracture [Unknown]
  - Decreased appetite [Unknown]
  - Paraesthesia [Unknown]
  - Femur fracture [Recovering/Resolving]
  - Fracture malunion [Unknown]
  - Oral surgery [Unknown]
  - Nausea [Unknown]
  - Limb asymmetry [Unknown]
  - Fracture nonunion [Unknown]
  - Activities of daily living impaired [Unknown]
  - Headache [Unknown]
  - Blood cortisol decreased [Unknown]
  - Hormone level abnormal [Unknown]
  - Femur fracture [Unknown]
  - Osteoarthritis [Unknown]
  - Pruritus [Unknown]
  - Tooth extraction [Unknown]
  - Endometriosis [Unknown]
  - Intramedullary rod insertion [Unknown]
  - Femur fracture [Recovering/Resolving]
  - Anaemia postoperative [Recovering/Resolving]
  - Spinal osteoarthritis [Unknown]
  - Kyphosis [Unknown]
  - Feeling of body temperature change [Unknown]
  - Depression [Unknown]
  - Adrenal insufficiency [Unknown]
  - Hypercholesterolaemia [Unknown]
  - Femur fracture [Recovering/Resolving]
  - Osteoarthritis [Unknown]
  - Femur fracture [Recovered/Resolved]
  - Complex regional pain syndrome [Unknown]
  - Mass [Unknown]
  - Bone metabolism disorder [Unknown]
  - Mood swings [Unknown]
  - Tibia fracture [Unknown]
  - Tooth fracture [Unknown]
  - Nausea [Unknown]
  - Blood corticotrophin [Unknown]

NARRATIVE: CASE EVENT DATE: 2008
